FAERS Safety Report 23065016 (Version 1)
Quarter: 2023Q4

REPORT INFORMATION
  Report Type: Spontaneous
  Country: US (occurrence: US)
  Receive Date: 20231013
  Receipt Date: 20231013
  Transmission Date: 20240110
  Serious: No
  Sender: FDA-Public Use
  Company Number: US-PFIZER INC-202300318516

PATIENT
  Age: 91 Year
  Sex: Female

DRUGS (1)
  1. COLESTIPOL HYDROCHLORIDE [Suspect]
     Active Substance: COLESTIPOL HYDROCHLORIDE
     Indication: Bile acids
     Dosage: TAKES 1 IN THE MORNING AND 1 AT NIGHT

REACTIONS (3)
  - Intentional product misuse [Unknown]
  - Dysphagia [Unknown]
  - Product size issue [Unknown]
